FAERS Safety Report 7169749-4 (Version None)
Quarter: 2010Q4

REPORT INFORMATION
  Report Type: 
  Country: None (occurrence: None)
  Receive Date: 20101217
  Receipt Date: 20091221
  Transmission Date: 20110411
  Serious: No
  Sender: FDA-Public Use
  Company Number: A0836235A

PATIENT
  Age: 75 Year
  Sex: Male

DRUGS (2)
  1. SORIATANE [Suspect]
     Indication: PSORIASIS
     Route: 048
     Dates: start: 20090718
  2. COUMADIN [Concomitant]

REACTIONS (3)
  - NERVOUSNESS [None]
  - NIPPLE PAIN [None]
  - SKIN EXFOLIATION [None]
